FAERS Safety Report 17265637 (Version 2)
Quarter: 2022Q1

REPORT INFORMATION
  Report Type: Report from Study
  Country: CA (occurrence: None)
  Receive Date: 20200114
  Receipt Date: 20220103
  Transmission Date: 20220423
  Serious: Yes (Hospitalization)
  Sender: FDA-Public Use
  Company Number: CA-ORION CORPORATION ORION PHARMA-TREX2020-0277

PATIENT
  Age: 53 Year
  Sex: Male

DRUGS (14)
  1. METHOTREXATE [Suspect]
     Active Substance: METHOTREXATE
     Indication: Product used for unknown indication
     Route: 065
  2. BETAMETHASONE [Suspect]
     Active Substance: BETAMETHASONE
     Indication: Product used for unknown indication
     Route: 065
  3. BETAMETHASONE [Suspect]
     Active Substance: BETAMETHASONE
     Route: 065
  4. COSENTYX [Suspect]
     Active Substance: SECUKINUMAB
     Indication: Psoriatic arthropathy
     Route: 058
  5. COSENTYX [Suspect]
     Active Substance: SECUKINUMAB
     Indication: Psoriasis
     Route: 058
  6. COSENTYX [Suspect]
     Active Substance: SECUKINUMAB
     Route: 065
  7. COSENTYX [Suspect]
     Active Substance: SECUKINUMAB
     Route: 065
  8. COSENTYX [Suspect]
     Active Substance: SECUKINUMAB
     Route: 058
  9. COSENTYX [Suspect]
     Active Substance: SECUKINUMAB
     Route: 058
  10. COSENTYX [Suspect]
     Active Substance: SECUKINUMAB
     Route: 058
  11. COSENTYX [Suspect]
     Active Substance: SECUKINUMAB
     Route: 058
  12. COSENTYX [Suspect]
     Active Substance: SECUKINUMAB
     Route: 065
  13. COSENTYX [Suspect]
     Active Substance: SECUKINUMAB
     Route: 058
  14. COSENTYX [Suspect]
     Active Substance: SECUKINUMAB
     Route: 065

REACTIONS (15)
  - Therapeutic product effect incomplete [Not Recovered/Not Resolved]
  - Product prescribing error [Not Recovered/Not Resolved]
  - Burning sensation [Not Recovered/Not Resolved]
  - Cellulitis [Not Recovered/Not Resolved]
  - Confusional state [Not Recovered/Not Resolved]
  - Feeling abnormal [Not Recovered/Not Resolved]
  - Nasopharyngitis [Not Recovered/Not Resolved]
  - Peripheral swelling [Not Recovered/Not Resolved]
  - Psoriasis [Not Recovered/Not Resolved]
  - Pyrexia [Not Recovered/Not Resolved]
  - Rash [Not Recovered/Not Resolved]
  - Scab [Not Recovered/Not Resolved]
  - Cystitis [Not Recovered/Not Resolved]
  - Localised infection [Not Recovered/Not Resolved]
  - Foot fracture [Not Recovered/Not Resolved]
